FAERS Safety Report 6370415-3 (Version None)
Quarter: 2009Q3

REPORT INFORMATION
  Report Type: 
  Country: None (occurrence: None)
  Receive Date: 20090923
  Receipt Date: 20090901
  Transmission Date: 20100115
  Serious: Yes (Hospitalization)
  Sender: FDA-Public Use
  Company Number: US-BAXTER-2008BH001884

PATIENT
  Age: 15 Year
  Sex: Male
  Weight: 64 kg

DRUGS (4)
  1. GAMMAGARD LIQUID [Suspect]
     Indication: IMMUNODEFICIENCY COMMON VARIABLE
     Route: 042
     Dates: start: 20080226, end: 20080226
  2. BACTRIM [Concomitant]
     Indication: PROPHYLAXIS
     Route: 048
     Dates: start: 20071201
  3. ALBUTEROL [Concomitant]
     Indication: COUGH
     Route: 055
     Dates: start: 20071201
  4. IBUPROFEN [Concomitant]
     Indication: DRUG USE FOR UNKNOWN INDICATION
     Route: 065

REACTIONS (1)
  - SICKLE CELL ANAEMIA WITH CRISIS [None]
